FAERS Safety Report 6820392-3 (Version None)
Quarter: 2010Q3

REPORT INFORMATION
  Report Type: 
  Country: None (occurrence: None)
  Receive Date: 20100707
  Receipt Date: 20100702
  Transmission Date: 20110219
  Serious: Yes (Other)
  Sender: FDA-Public Use
  Company Number: US-ELI_LILLY_AND_COMPANY-US201007000611

PATIENT
  Sex: Male

DRUGS (2)
  1. HUMALOG [Suspect]
     Indication: DIABETES MELLITUS
     Dosage: UNK, 3/D
  2. LANTUS [Concomitant]

REACTIONS (3)
  - BLADDER CANCER STAGE IV [None]
  - BLOOD GLUCOSE FLUCTUATION [None]
  - POOR QUALITY DRUG ADMINISTERED [None]
